FAERS Safety Report 12266231 (Version 1)
Quarter: 2016Q2

REPORT INFORMATION
  Report Type: Spontaneous
  Country: US (occurrence: None)
  Receive Date: 20160413
  Receipt Date: 20160413
  Transmission Date: 20160815
  Serious: Yes (Life-Threatening, Hospitalization)
  Sender: FDA-Public Use
  Company Number: None

PATIENT
  Age: 18 Year
  Sex: Female
  Weight: 61.24 kg

DRUGS (9)
  1. LISINOPRIL. [Concomitant]
     Active Substance: LISINOPRIL
  2. FISH OIL [Concomitant]
     Active Substance: FISH OIL
  3. PAIN RELIEVER [Concomitant]
     Active Substance: ACETAMINOPHEN\ASPIRIN\SALICYLAMIDE
  4. VITAMIN C [Concomitant]
     Active Substance: ASCORBIC ACID
  5. DROPS [Concomitant]
  6. CAPVEDILOL [Concomitant]
  7. LAMICTAL [Suspect]
     Active Substance: LAMOTRIGINE
     Indication: BIPOLAR DISORDER
     Route: 048
     Dates: start: 20151119, end: 20151204
  8. MELATONIN [Concomitant]
     Active Substance: MELATONIN
  9. EYE OINTMENTS [Concomitant]

REACTIONS (6)
  - Stevens-Johnson syndrome [None]
  - Toxic epidermal necrolysis [None]
  - Cardiac failure [None]
  - Infection [None]
  - Paralysis [None]
  - Dry eye [None]

NARRATIVE: CASE EVENT DATE: 20151204
